FAERS Safety Report 24159481 (Version 1)
Quarter: 2024Q3

REPORT INFORMATION
  Report Type: Spontaneous
  Country: US (occurrence: US)
  Receive Date: 20240731
  Receipt Date: 20240731
  Transmission Date: 20241016
  Serious: No
  Sender: PFIZER
  Company Number: US-PFIZER INC-PV202400099742

PATIENT
  Age: 57 Year
  Sex: Female

DRUGS (1)
  1. DUAVEE [Suspect]
     Active Substance: BAZEDOXIFENE ACETATE\ESTROGENS, CONJUGATED
     Dosage: 1 DF, DAILY
     Route: 048
     Dates: start: 20240612

REACTIONS (2)
  - Condition aggravated [Not Recovered/Not Resolved]
  - Menopausal symptoms [Not Recovered/Not Resolved]
